FAERS Safety Report 4279619-7 (Version None)
Quarter: 2004Q1

REPORT INFORMATION
  Report Type: 
  Country: None (occurrence: None)
  Receive Date: 20040123
  Receipt Date: 20040108
  Transmission Date: 20041129
  Serious: Yes (Life-Threatening, Hospitalization)
  Sender: FDA-Public Use
  Company Number: S04-USA-00094-01

PATIENT
  Age: 47 Year
  Sex: Male

DRUGS (4)
  1. CELEXA [Suspect]
  2. XANAX [Concomitant]
  3. KLONOPIN [Concomitant]
  4. PRINIVIL [Concomitant]

REACTIONS (3)
  - MYOPATHY [None]
  - RENAL FAILURE ACUTE [None]
  - RHABDOMYOLYSIS [None]
